FAERS Safety Report 20751239 (Version 1)
Quarter: 2022Q2

REPORT INFORMATION
  Report Type: Spontaneous
  Country: US (occurrence: US)
  Receive Date: 20220426
  Receipt Date: 20220426
  Transmission Date: 20220721
  Serious: Yes (Hospitalization)
  Sender: FDA-Public Use
  Company Number: US-BIOVITRUM-2022US05538

PATIENT
  Sex: Female
  Weight: 10 kg

DRUGS (7)
  1. SYNAGIS [Suspect]
     Active Substance: PALIVIZUMAB
     Indication: Antiviral prophylaxis
     Route: 030
     Dates: start: 202110
  2. XOPENEX [Concomitant]
     Active Substance: LEVALBUTEROL HYDROCHLORIDE
     Dosage: 0.63MG/3ML VIAL-NEB
  3. PREDNISONE [Concomitant]
     Active Substance: PREDNISONE
     Dosage: 5 MG/5 ML SOLUTION
  4. PHENOBARBITAL [Concomitant]
     Active Substance: PHENOBARBITAL
     Dosage: 20 MG/5 ML ELIXIR
  5. OMEPRAZOLE [Concomitant]
     Active Substance: OMEPRAZOLE
  6. SIMETHICONE (DIMETHICONE) [Concomitant]
     Active Substance: DIMETHICONE
     Dosage: 40MG/0.6ML DROPS SUSP
  7. IRONUP [Concomitant]
     Dosage: 15MG/0.5ML DROPS

REACTIONS (2)
  - Respiratory tract infection [Unknown]
  - Illness [Unknown]
